FAERS Safety Report 7657150-6 (Version None)
Quarter: 2011Q3

REPORT INFORMATION
  Report Type: 
  Country: None (occurrence: None)
  Receive Date: 20110804
  Receipt Date: 20110601
  Transmission Date: 20111222
  Serious: No
  Sender: FDA-Public Use
  Company Number: US-GLAXOSMITHKLINE-A0929899A

PATIENT
  Age: 71 Year
  Sex: Female

DRUGS (14)
  1. NIASPAN [Concomitant]
  2. VITAMIN B COMPLEX CAP [Concomitant]
  3. LEXAPRO [Concomitant]
  4. CALCIUM CITRATE [Concomitant]
  5. MAGNESIUM [Concomitant]
  6. INHALER [Concomitant]
  7. DELSYM [Concomitant]
  8. FISH OIL [Concomitant]
  9. ZINC [Concomitant]
  10. VENTOLIN HFA [Concomitant]
     Route: 055
  11. ADVAIR DISKUS 100/50 [Suspect]
     Indication: LUNG DISORDER
     Route: 055
     Dates: start: 20080101
  12. NEXIUM [Concomitant]
  13. LIPITOR [Concomitant]
  14. VITAMIN D [Concomitant]

REACTIONS (2)
  - OROPHARYNGEAL PAIN [None]
  - OESOPHAGITIS [None]
